FAERS Safety Report 8519851-7 (Version None)
Quarter: 2012Q3

REPORT INFORMATION
  Report Type: 
  Country: None (occurrence: None)
  Receive Date: 20120719
  Receipt Date: 20120710
  Transmission Date: 20120928
  Serious: No
  Sender: FDA-Public Use
  Company Number: US-BIOGENIDEC-2012BI025218

PATIENT
  Age: 38 Year
  Sex: Female

DRUGS (2)
  1. TYSABRI [Suspect]
     Indication: MULTIPLE SCLEROSIS
     Route: 042
     Dates: start: 20080417
  2. KEPPRA [Concomitant]
     Indication: CONVULSION

REACTIONS (7)
  - STRESS [None]
  - ANXIETY [None]
  - URINARY TRACT INFECTION [None]
  - FATIGUE [None]
  - FOOD POISONING [None]
  - PANIC ATTACK [None]
  - INSOMNIA [None]
